FAERS Safety Report 9714113 (Version 2)
Quarter: 2013Q4

REPORT INFORMATION
  Report Type: Spontaneous
  Country: US (occurrence: US)
  Receive Date: 20131126
  Receipt Date: 20131126
  Transmission Date: 20140711
  Serious: No
  Sender: FDA-Public Use
  Company Number: US-GILEAD-2008-0018283

PATIENT
  Sex: Male
  Weight: 106.59 kg

DRUGS (18)
  1. LETAIRIS [Suspect]
     Indication: PULMONARY ARTERIAL HYPERTENSION
     Route: 048
     Dates: start: 20080409
  2. NORVASC [Concomitant]
     Route: 048
  3. COUMADIN [Concomitant]
     Route: 048
  4. BUMEX [Concomitant]
     Route: 048
  5. ZAROXOLYN [Concomitant]
     Route: 048
  6. VASOTEC [Concomitant]
     Route: 048
  7. METFORMIN HCL [Concomitant]
     Route: 048
  8. ALLOPURINOL [Concomitant]
     Route: 048
  9. MOBIC [Concomitant]
     Route: 048
  10. OXYCODONE [Concomitant]
     Route: 048
  11. POTASSIUM CHLORIDE [Concomitant]
     Route: 048
  12. OMEPRAZOLE [Concomitant]
     Route: 048
  13. VIREAD [Concomitant]
     Route: 048
  14. APTIVUS [Concomitant]
     Route: 048
  15. PREZISTA [Concomitant]
     Route: 048
  16. ZERIT [Concomitant]
     Route: 048
  17. NORVIR [Concomitant]
     Route: 048
  18. COMBIVIR [Concomitant]

REACTIONS (1)
  - Dizziness [None]
